FAERS Safety Report 7674920-9 (Version None)
Quarter: 2011Q3

REPORT INFORMATION
  Report Type: 
  Country: None (occurrence: None)
  Receive Date: 20110810
  Receipt Date: 20110727
  Transmission Date: 20111222
  Serious: Yes (Hospitalization)
  Sender: FDA-Public Use
  Company Number: CA-ELI_LILLY_AND_COMPANY-CA201107007230

PATIENT
  Sex: Male

DRUGS (11)
  1. EFFEXOR XR [Concomitant]
  2. CELEXA [Concomitant]
  3. ZYPREXA [Suspect]
     Indication: HALLUCINATION, AUDITORY
     Dosage: 5 MG, EACH EVENING
     Dates: start: 20000815
  4. ZOPICLONE [Concomitant]
  5. PRAVASTATIN [Concomitant]
  6. COGENTIN [Concomitant]
  7. LOXAPINE HCL [Concomitant]
  8. DOXEPIN [Concomitant]
  9. TRAZODONE HCL [Concomitant]
  10. REMERON [Concomitant]
  11. RISPERDAL [Concomitant]

REACTIONS (4)
  - DIABETES MELLITUS [None]
  - BURNING SENSATION [None]
  - HYPERTENSION [None]
  - HAEMATURIA [None]
